FAERS Safety Report 16119258 (Version 1)
Quarter: 2019Q1

REPORT INFORMATION
  Report Type: Spontaneous
  Country: ZA (occurrence: ZA)
  Receive Date: 20190326
  Receipt Date: 20190326
  Transmission Date: 20190418
  Serious: Yes (Hospitalization, Other)
  Sender: FDA-Public Use
  Company Number: ZA-CASPER PHARMA LLC-2019CAS000109

PATIENT
  Age: 17 Year
  Sex: Male

DRUGS (3)
  1. VITAMIN A PALMITATE [Suspect]
     Active Substance: VITAMIN A PALMITATE
     Indication: MENTAL IMPAIRMENT
  2. VITAMIN A PALMITATE [Suspect]
     Active Substance: VITAMIN A PALMITATE
     Indication: SUNBURN
  3. VITAMIN A PALMITATE [Suspect]
     Active Substance: VITAMIN A PALMITATE
     Indication: ACNE
     Dosage: 150000 UNK, QD
     Route: 065

REACTIONS (2)
  - Hypercalcaemia [Recovered/Resolved]
  - Hypervitaminosis A [Recovered/Resolved]
